FAERS Safety Report 6436841-9 (Version None)
Quarter: 2009Q4

REPORT INFORMATION
  Report Type: 
  Country: None (occurrence: None)
  Receive Date: 20091111
  Receipt Date: 20090907
  Transmission Date: 20100525
  Serious: No
  Sender: FDA-Public Use
  Company Number: US-ALLERGAN-0912471US

PATIENT
  Age: 69 Year
  Sex: Female

DRUGS (8)
  1. SANCTURA XR [Suspect]
     Indication: HYPERTONIC BLADDER
     Dosage: 60 MG, QAM
     Route: 048
     Dates: start: 20090907, end: 20090907
  2. SINGULAIR [Concomitant]
  3. PAROXETINE [Concomitant]
  4. ASPIRIN [Concomitant]
  5. VITAMIN PILL [Concomitant]
  6. NEBULIZER [Concomitant]
  7. ALBUTEROL [Concomitant]
     Dosage: UNK
  8. PULMICORT [Concomitant]
     Dosage: UNK

REACTIONS (2)
  - URINARY INCONTINENCE [None]
  - URINARY RETENTION [None]
